FAERS Safety Report 4984306-3 (Version None)
Quarter: 2006Q2

REPORT INFORMATION
  Report Type: 
  Country: None (occurrence: None)
  Receive Date: 20060420
  Receipt Date: 20060410
  Transmission Date: 20061013
  Serious: Yes (Hospitalization)
  Sender: FDA-Public Use
  Company Number: GXKR2006GB02009

PATIENT
  Age: 73 Year
  Sex: Female

DRUGS (10)
  1. RANITIDINE [Suspect]
  2. OMEPRAZOLE (NGX) (OMEPRAZOLE) UNKNOWN [Suspect]
  3. METHOTREXATE [Concomitant]
  4. PREDNISOLONE [Concomitant]
  5. FOLIC ACID (NGX)(FOLIC ACID) UNKNOWN [Suspect]
  6. HUMIRA [Suspect]
     Indication: RHEUMATOID ARTHRITIS
     Dosage: 40 MG, BIW
     Dates: start: 20040415
  7. DIDRONEL [Suspect]
  8. TENORETIC 100 [Suspect]
  9. ALENDRONATE SODIUM [Suspect]
  10. ARTHROTEC [Suspect]

REACTIONS (4)
  - GASTROENTERITIS ESCHERICHIA COLI [None]
  - NEUTROPHILIA [None]
  - URINARY TRACT INFECTION [None]
  - WHITE BLOOD CELL COUNT INCREASED [None]
